FAERS Safety Report 6469417-8 (Version None)
Quarter: 2009Q4

REPORT INFORMATION
  Report Type: 
  Country: None (occurrence: None)
  Receive Date: 20091202
  Receipt Date: 20091202
  Transmission Date: 20100525
  Serious: Yes (Hospitalization)
  Sender: FDA-Public Use
  Company Number: None

PATIENT
  Age: 86 Year
  Sex: Male
  Weight: 56.9 kg

DRUGS (1)
  1. VALSARTAN [Suspect]
     Indication: HYPERTENSION
     Dosage: 160 MG BID PO
     Route: 048
     Dates: start: 20051026, end: 20091119

REACTIONS (2)
  - HYPERKALAEMIA [None]
  - HYPOTENSION [None]
